FAERS Safety Report 24271356 (Version 8)
Quarter: 2025Q1

REPORT INFORMATION
  Report Type: Report from Study
  Country: US (occurrence: US)
  Receive Date: 20240901
  Receipt Date: 20250313
  Transmission Date: 20250409
  Serious: Yes (Other)
  Sender: UCB
  Company Number: US-UCBSA-2024027942

PATIENT
  Sex: Female
  Weight: 4.5 kg

DRUGS (13)
  1. FINTEPLA [Suspect]
     Active Substance: FENFLURAMINE
     Indication: Tuberous sclerosis complex
     Dosage: 2 MILLILITER, 2X/DAY (BID)
     Dates: start: 20240531
  2. FINTEPLA [Suspect]
     Active Substance: FENFLURAMINE
     Indication: Off label use
     Dosage: 2 MILLILITER, 2X/DAY (BID)
  3. FINTEPLA [Suspect]
     Active Substance: FENFLURAMINE
     Indication: Partial seizures
     Dosage: 2 MILLILITER, 2X/DAY (BID)
     Dates: start: 20240601
  4. FINTEPLA [Suspect]
     Active Substance: FENFLURAMINE
     Dosage: 2 MILLILITER, 2X/DAY (BID)
  5. FINTEPLA [Suspect]
     Active Substance: FENFLURAMINE
     Dosage: 2 MILLILITER, 2X/DAY (BID)
     Dates: start: 20240726
  6. FINTEPLA [Suspect]
     Active Substance: FENFLURAMINE
     Dosage: 4 MILLILITER, 2X/DAY (BID) (2 ML BY MOUTH IN THE MORNING AND 2 ML BEFORE BEDTIME)
     Dates: start: 20241017
  7. FINTEPLA [Suspect]
     Active Substance: FENFLURAMINE
     Dosage: 2 MILLILITER, 2X/DAY (BID)
  8. VIMPAT [Suspect]
     Active Substance: LACOSAMIDE
     Indication: Tuberous sclerosis complex
  9. VIMPAT [Suspect]
     Active Substance: LACOSAMIDE
     Indication: Off label use
  10. ONFI [Suspect]
     Active Substance: CLOBAZAM
     Indication: Seizure
     Dates: start: 202409
  11. CANNABIDIOL\HERBALS [Suspect]
     Active Substance: CANNABIDIOL\HERBALS
     Indication: Product used for unknown indication
     Dates: start: 202409
  12. FYCOMPA [Concomitant]
     Active Substance: PERAMPANEL
     Indication: Seizure
  13. KLONOPIN [Concomitant]
     Active Substance: CLONAZEPAM
     Indication: Seizure

REACTIONS (10)
  - Generalised tonic-clonic seizure [Recovered/Resolved]
  - Partial seizures [Not Recovered/Not Resolved]
  - Seizure cluster [Not Recovered/Not Resolved]
  - Seizure [Not Recovered/Not Resolved]
  - Neoplasm [Not Recovered/Not Resolved]
  - Decreased appetite [Not Recovered/Not Resolved]
  - Lethargy [Not Recovered/Not Resolved]
  - Fatigue [Recovered/Resolved]
  - Off label use [Unknown]
  - Drug ineffective [Unknown]

NARRATIVE: CASE EVENT DATE: 20240101
